FAERS Safety Report 5335039-5 (Version None)
Quarter: 2007Q2

REPORT INFORMATION
  Report Type: 
  Country: None (occurrence: None)
  Receive Date: 20070525
  Receipt Date: 20070522
  Transmission Date: 20071010
  Serious: Yes (Disabling)
  Sender: FDA-Public Use
  Company Number: A0652358A

PATIENT
  Age: 81 Year
  Sex: Female

DRUGS (6)
  1. VALTREX [Suspect]
     Dosage: 500MG THREE TIMES PER DAY
     Route: 048
     Dates: start: 20070517, end: 20070520
  2. VICODIN [Concomitant]
  3. ALTACE [Concomitant]
  4. PROCARDIA [Concomitant]
  5. NEXIUM [Concomitant]
  6. ZOCOR [Concomitant]

REACTIONS (4)
  - CONFUSIONAL STATE [None]
  - DELUSION [None]
  - HALLUCINATION, VISUAL [None]
  - PRESCRIBED OVERDOSE [None]
